FAERS Safety Report 18623247 (Version 1)
Quarter: 2020Q4

REPORT INFORMATION
  Report Type: Spontaneous
  Country: GB (occurrence: GB)
  Receive Date: 20201216
  Receipt Date: 20201216
  Transmission Date: 20210114
  Serious: Yes (Other)
  Sender: FDA-Public Use
  Company Number: GB-MYLANLABS-2020M1101422

PATIENT
  Sex: Male

DRUGS (2)
  1. ADCAL D3 [Suspect]
     Active Substance: CALCIUM CARBONATE\CHOLECALCIFEROL
     Indication: OSTEOPENIA
     Dosage: UNK,CALCUM CARBONATE 1500MG AND VITAMIN D 400 IU
     Route: 065
  2. ALENDRONATE [Suspect]
     Active Substance: ALENDRONATE SODIUM
     Indication: OSTEOPENIA
     Dosage: 70 MG
     Route: 065

REACTIONS (3)
  - Atherosclerotic plaque rupture [Unknown]
  - Therapy non-responder [Unknown]
  - Computerised tomogram coronary artery abnormal [Unknown]

NARRATIVE: CASE EVENT DATE: 201811
